FAERS Safety Report 9712281 (Version 1)
Quarter: 2013Q4

REPORT INFORMATION
  Report Type: Spontaneous
  Country: US (occurrence: US)
  Receive Date: 20131126
  Receipt Date: 20131126
  Transmission Date: 20140711
  Serious: No
  Sender: FDA-Public Use
  Company Number: US-BRISTOL-MYERS SQUIBB COMPANY-18856609

PATIENT
  Age: 64 Year
  Sex: Male
  Weight: 113.38 kg

DRUGS (1)
  1. BYDUREON [Suspect]
     Indication: TYPE 2 DIABETES MELLITUS
     Dosage: NO OF DOSE:6 DOSES

REACTIONS (2)
  - Constipation [Unknown]
  - Urinary tract infection [Unknown]
